FAERS Safety Report 24990577 (Version 1)
Quarter: 2025Q1

REPORT INFORMATION
  Report Type: Spontaneous
  Country: PT (occurrence: PT)
  Receive Date: 20250220
  Receipt Date: 20250220
  Transmission Date: 20250409
  Serious: Yes (Disabling)
  Sender: FRESENIUS KABI
  Company Number: PT-PFIZER INC-PV202500015146

PATIENT
  Age: 32 Year
  Sex: Female

DRUGS (2)
  1. DEXAMETHASONE [Suspect]
     Active Substance: DEXAMETHASONE
     Indication: Product used for unknown indication
  2. TUCATINIB [Suspect]
     Active Substance: TUCATINIB
     Indication: Metastases to central nervous system
     Dates: start: 202412

REACTIONS (1)
  - Drug interaction [Recovering/Resolving]
